FAERS Safety Report 14750640 (Version 3)
Quarter: 2019Q2

REPORT INFORMATION
  Report Type: Spontaneous
  Country: US (occurrence: US)
  Receive Date: 20180412
  Receipt Date: 20190612
  Transmission Date: 20190711
  Serious: No
  Sender: FDA-Public Use
  Company Number: US-PFIZER INC-2018148133

PATIENT
  Age: 73 Year
  Sex: Female
  Weight: 83.46 kg

DRUGS (22)
  1. LYRICA [Suspect]
     Active Substance: PREGABALIN
     Indication: PARAESTHESIA
  2. PANTOPRAZOLE [Concomitant]
     Active Substance: PANTOPRAZOLE
     Dosage: 20 MG, 1X/DAY
  3. HYDROCHLOROTHIAZIDE. [Concomitant]
     Active Substance: HYDROCHLOROTHIAZIDE
     Dosage: 25 MG, 1X/DAY
  4. FERROUS SULFATE. [Concomitant]
     Active Substance: FERROUS SULFATE
     Indication: MINERAL SUPPLEMENTATION
     Dosage: 325MG TABLET ONE A DAY
  5. LYRICA [Suspect]
     Active Substance: PREGABALIN
     Indication: DIABETIC FOOT
     Dosage: 150 MG, DAILY
  6. TRESIBA [Concomitant]
     Active Substance: INSULIN DEGLUDEC
     Dosage: 50 UNITS A DAY A DAY. IT IS A SHOT
  7. ATORVASTATIN [Concomitant]
     Active Substance: ATORVASTATIN
     Dosage: 40 MG, 1X/DAY
  8. SPIRONOLACTONE. [Concomitant]
     Active Substance: SPIRONOLACTONE
     Dosage: 25 MG, 1X/DAY
  9. JANUMET [Concomitant]
     Active Substance: METFORMIN HYDROCHLORIDE\SITAGLIPTIN PHOSPHATE
     Indication: DIABETES MELLITUS
     Dosage: 50MG TABLET BY MOUTH ONCE A DAY BEDTIME
     Route: 048
  10. TRAZODONE [Concomitant]
     Active Substance: TRAZODONE HYDROCHLORIDE
     Dosage: 50 MG, 1X/DAY
  11. BIO FLEX [Concomitant]
     Dosage: 1 DF, DAILY
  12. ASPIRIN. [Concomitant]
     Active Substance: ASPIRIN
     Dosage: 81MG EVERY DAY
  13. PRAMIPEXOLE. [Concomitant]
     Active Substance: PRAMIPEXOLE
     Indication: RESTLESS LEGS SYNDROME
     Dosage: 25MG ONE AND A HALF TABLET A DAY
  14. VITAMIN D3 [Concomitant]
     Active Substance: CHOLECALCIFEROL
     Dosage: 1000 UNITS TWO A DAY; OR 2000 UNITS ONE A DAY
  15. COQ 10 [Concomitant]
     Active Substance: UBIDECARENONE
     Dosage: 100MG ONE CAPSULE A DAY
  16. ACETAMINOPHEN. [Concomitant]
     Active Substance: ACETAMINOPHEN
     Dosage: TWO 500MG IN THE MORNING
  17. LYRICA [Suspect]
     Active Substance: PREGABALIN
     Indication: HYPOAESTHESIA
  18. TOLTERODINE [Concomitant]
     Active Substance: TOLTERODINE
     Indication: NAUSEA
     Dosage: 4 MG, 1X/DAY
  19. FISH OIL [Concomitant]
     Active Substance: FISH OIL
     Dosage: ONE CAPSULE ONCE A DAY
  20. BENADRYL [Concomitant]
     Active Substance: DIPHENHYDRAMINE HYDROCHLORIDE
     Dosage: 25MG CAPLET ONCE A DAY
  21. FARXIGA [Concomitant]
     Active Substance: DAPAGLIFLOZIN PROPANEDIOL
     Indication: DIABETES MELLITUS
     Dosage: 5 MG, 1X/DAY
  22. IBUPROFEN. [Concomitant]
     Active Substance: IBUPROFEN
     Dosage: FOUR 200MG TABLETS A DAY

REACTIONS (10)
  - Nausea [Unknown]
  - Malaise [Unknown]
  - Pain in extremity [Unknown]
  - Vertigo positional [Unknown]
  - Asthenia [Unknown]
  - Somnolence [Unknown]
  - Peripheral swelling [Unknown]
  - Fatigue [Unknown]
  - Product dose omission [Unknown]
  - Vertigo [Unknown]

NARRATIVE: CASE EVENT DATE: 2018
